FAERS Safety Report 25471466 (Version 1)
Quarter: 2025Q2

REPORT INFORMATION
  Report Type: Spontaneous
  Country: US (occurrence: US)
  Receive Date: 20250624
  Receipt Date: 20250624
  Transmission Date: 20250717
  Serious: No
  Sender: GLENMARK
  Company Number: US-GLENMARK PHARMACEUTICALS-2024GMK095146

PATIENT

DRUGS (2)
  1. MUPIROCIN [Suspect]
     Active Substance: MUPIROCIN
     Indication: Infection
     Dosage: UNK, OD (ONCE DAILY IN THE MORNING)
     Route: 061
     Dates: start: 2024, end: 20241009
  2. MUPIROCIN [Suspect]
     Active Substance: MUPIROCIN
     Indication: Rash

REACTIONS (5)
  - Application site scab [Unknown]
  - Adverse drug reaction [Unknown]
  - Application site pain [Recovering/Resolving]
  - Product use in unapproved indication [Unknown]
  - Recalled product administered [Unknown]

NARRATIVE: CASE EVENT DATE: 20241001
